FAERS Safety Report 8034295-2 (Version None)
Quarter: 2012Q1

REPORT INFORMATION
  Report Type: 
  Country: None (occurrence: None)
  Receive Date: 20120110
  Receipt Date: 20120105
  Transmission Date: 20120608
  Serious: Yes (Hospitalization, Other)
  Sender: FDA-Public Use
  Company Number: PHHY2012BR001408

PATIENT
  Age: 46 Year
  Sex: Male

DRUGS (4)
  1. SPIRONOLACTONE [Concomitant]
     Dosage: 25 MG, UNK
  2. CARVEDILOL [Concomitant]
     Dosage: 2 DF, DAILY
  3. SIMVASTATIN [Concomitant]
     Dosage: 1 DF, DAILY
  4. DIOVAN [Suspect]
     Indication: HYPERTENSION
     Dosage: 1 DF, DAILY
     Route: 048

REACTIONS (2)
  - ARRHYTHMIA [None]
  - BLOOD PRESSURE INCREASED [None]
